FAERS Safety Report 7929625-3 (Version None)
Quarter: 2011Q4

REPORT INFORMATION
  Report Type: 
  Country: None (occurrence: None)
  Receive Date: 20111121
  Receipt Date: 20111110
  Transmission Date: 20120403
  Serious: Yes (Other)
  Sender: FDA-Public Use
  Company Number: CO-JNJFOC-20111105322

PATIENT
  Age: 35 Year
  Sex: Male

DRUGS (1)
  1. REMICADE [Suspect]
     Indication: PSORIASIS
     Route: 042
     Dates: start: 20110127

REACTIONS (6)
  - INFUSION RELATED REACTION [None]
  - FEELING HOT [None]
  - DYSPNOEA [None]
  - FLUSHING [None]
  - COUGH [None]
  - CONJUNCTIVAL HYPERAEMIA [None]
